FAERS Safety Report 4414835-2 (Version None)
Quarter: 2004Q3

REPORT INFORMATION
  Report Type: 
  Country: None (occurrence: None)
  Receive Date: 20040804
  Receipt Date: 20031117
  Transmission Date: 20050211
  Serious: No
  Sender: FDA-Public Use
  Company Number: US-BRISTOL-MYERS SQUIBB COMPANY-12437216

PATIENT
  Age: 72 Year
  Sex: Female
  Weight: 91 kg

DRUGS (5)
  1. GLUCOVANCE [Suspect]
     Indication: DIABETES MELLITUS NON-INSULIN-DEPENDENT
     Route: 048
     Dates: start: 20031103
  2. TRICOR [Concomitant]
  3. TYLENOL [Concomitant]
  4. BEN GAY [Concomitant]
  5. FLU VACCINE [Concomitant]
     Dates: start: 20031103

REACTIONS (3)
  - CONSTIPATION [None]
  - DEHYDRATION [None]
  - SWOLLEN TONGUE [None]
